FAERS Safety Report 9569181 (Version 1)
Quarter: 2013Q3

REPORT INFORMATION
  Report Type: Spontaneous
  Country: US (occurrence: US)
  Receive Date: 20130930
  Receipt Date: 20130930
  Transmission Date: 20140515
  Serious: No
  Sender: FDA-Public Use
  Company Number: US-AMGEN-USASP2013059276

PATIENT
  Age: 12 Year
  Sex: Female

DRUGS (1)
  1. ENBREL [Suspect]
     Indication: JUVENILE IDIOPATHIC ARTHRITIS
     Dosage: 50 MG, QWK
     Route: 065
     Dates: start: 20130601

REACTIONS (4)
  - Joint swelling [Not Recovered/Not Resolved]
  - Injection site bruising [Recovered/Resolved]
  - Ear infection [Recovered/Resolved]
  - Injection site induration [Recovered/Resolved]
